FAERS Safety Report 18126862 (Version 1)
Quarter: 2020Q3

REPORT INFORMATION
  Report Type: Spontaneous
  Country: US (occurrence: US)
  Receive Date: 20200810
  Receipt Date: 20200810
  Transmission Date: 20201103
  Serious: Yes (Other)
  Sender: FDA-Public Use
  Company Number: US-DRREDDYS-USA/USA/20/0125629

PATIENT
  Sex: Female
  Weight: 67.5 kg

DRUGS (1)
  1. METOPROLOL SUCCINATE. [Suspect]
     Active Substance: METOPROLOL SUCCINATE
     Indication: ATRIAL TACHYCARDIA
     Route: 048
     Dates: start: 20200716, end: 20200724

REACTIONS (3)
  - Illness [Unknown]
  - Anaphylactic reaction [Unknown]
  - Abdominal pain upper [Unknown]
